FAERS Safety Report 25216425 (Version 2)
Quarter: 2025Q2

REPORT INFORMATION
  Report Type: Spontaneous
  Country: US (occurrence: US)
  Receive Date: 20250418
  Receipt Date: 20250429
  Transmission Date: 20250717
  Serious: No
  Sender: ROCHE
  Company Number: US-ROCHE-10000256728

PATIENT
  Age: 70 Year
  Sex: Male

DRUGS (3)
  1. ERIVEDGE [Suspect]
     Active Substance: VISMODEGIB
     Indication: Basal cell carcinoma
     Dosage: TIME OF LATEST SUSPECT DRUG ADMINISTRATION 03/APR/2025.
     Route: 048
     Dates: start: 202411, end: 20250404
  2. ERIVEDGE [Suspect]
     Active Substance: VISMODEGIB
     Dosage: TIME OF LATEST SUSPECT DRUG ADMINISTRATION 03/APR/2025.
     Route: 048
     Dates: start: 20221105, end: 20250404
  3. LEVOCARNITINE [Concomitant]
     Active Substance: LEVOCARNITINE

REACTIONS (1)
  - Disease progression [Not Recovered/Not Resolved]

NARRATIVE: CASE EVENT DATE: 20250404
